FAERS Safety Report 4451653-3 (Version None)
Quarter: 2004Q3

REPORT INFORMATION
  Report Type: 
  Country: None (occurrence: None)
  Receive Date: 20040915
  Receipt Date: 20040901
  Transmission Date: 20050211
  Serious: Yes (Hospitalization)
  Sender: FDA-Public Use
  Company Number: 2004061037

PATIENT
  Age: 66 Year
  Sex: Female

DRUGS (12)
  1. FLUCONAZOLE [Suspect]
     Indication: SEPSIS
     Dosage: 100 MG (1D), ORAL
     Route: 048
     Dates: start: 20040528
  2. AMPICILLIN AND SULBACTAM [Suspect]
     Indication: INFECTION
     Dosage: 6 GRAM (1 D), INTRAVENOUS
     Route: 042
     Dates: start: 20040529, end: 20040531
  3. CYTARABINE [Suspect]
     Indication: ACUTE MYELOID LEUKAEMIA
     Dosage: 1400 MG (1 D), INTRAVENOUS
     Route: 042
     Dates: start: 20040601, end: 20040604
  4. POLYMYXIN B SULFATE [Suspect]
     Indication: INFECTION
     Dosage: (1 D), ORAL
     Route: 048
     Dates: start: 20040528
  5. IRSOGLADINE MALEATE (IRSOGLADINE MALEATE) [Suspect]
     Indication: GASTRITIS
     Dosage: 8 MG (1 D), ORAL
     Route: 048
     Dates: start: 20040528
  6. NIZATIDINE [Suspect]
     Indication: GASTRITIS
     Dosage: ORAL
     Route: 048
     Dates: start: 20040528, end: 20040603
  7. DEXAMETHASONE SODIUM SULFATE (DEXAMETHASONE  SULFATE) [Concomitant]
  8. ETIZOLAM (ETIZOLAM) [Concomitant]
  9. CEFTAZIDIME SODIUM [Concomitant]
  10. PRIMAXIN [Concomitant]
  11. MIRIMOSTIM (MIRIMOSTIM) [Concomitant]
  12. MINOCYCLINE HYDROCHLORIDE [Concomitant]

REACTIONS (6)
  - HYPOKALAEMIA [None]
  - INFECTION [None]
  - INFECTION PARASITIC [None]
  - NEUTROPENIA [None]
  - SEPSIS [None]
  - STAPHYLOCOCCAL INFECTION [None]
